FAERS Safety Report 8484187-X (Version None)
Quarter: 2012Q3

REPORT INFORMATION
  Report Type: 
  Country: None (occurrence: None)
  Receive Date: 20120703
  Receipt Date: 20120622
  Transmission Date: 20120928
  Serious: Yes (Hospitalization)
  Sender: FDA-Public Use
  Company Number: US-JNJFOC-20120613321

PATIENT
  Sex: Male
  Weight: 74.84 kg

DRUGS (1)
  1. ZYTIGA [Suspect]
     Indication: PROSTATE CANCER
     Route: 048
     Dates: start: 20110601

REACTIONS (5)
  - VASCULAR GRAFT [None]
  - WEIGHT INCREASED [None]
  - ATRIOVENTRICULAR SEPTAL DEFECT [None]
  - ADVERSE EVENT [None]
  - OXYGEN SATURATION DECREASED [None]
